FAERS Safety Report 8514312-3 (Version None)
Quarter: 2012Q3

REPORT INFORMATION
  Report Type: 
  Country: None (occurrence: None)
  Receive Date: 20120717
  Receipt Date: 20120709
  Transmission Date: 20120928
  Serious: No
  Sender: FDA-Public Use
  Company Number: US-JNJFOC-20120608113

PATIENT
  Sex: Female

DRUGS (2)
  1. STELARA [Suspect]
     Dosage: DOSE 1, O.5 ML FOR WEEK 0, 4 THEN 12 WEEKS ONCE
     Route: 058
     Dates: start: 20120509, end: 20120509
  2. STELARA [Suspect]
     Indication: PSORIASIS
     Dosage: DOSE 2
     Route: 058
     Dates: start: 20120608, end: 20120608

REACTIONS (1)
  - EYE PAIN [None]
